FAERS Safety Report 8581477-7 (Version None)
Quarter: 2012Q3

REPORT INFORMATION
  Report Type: 
  Country: None (occurrence: None)
  Receive Date: 20120809
  Receipt Date: 20120726
  Transmission Date: 20120928
  Serious: Yes (Death, Congenital Anomaly)
  Sender: FDA-Public Use
  Company Number: BR-MYLANLABS-2012S1015685

PATIENT

DRUGS (2)
  1. LOSARTAN POTASSIUM [Suspect]
     Indication: HYPERTENSION
     Dosage: 50 MG/D
     Route: 064
  2. METHYLDOPA [Concomitant]
     Indication: HYPERTENSION
     Route: 064

REACTIONS (11)
  - OLIGOHYDRAMNIOS [None]
  - MUSCLE CONTRACTURE [None]
  - FOETAL MALFORMATION [None]
  - RENAL APLASIA [None]
  - NEPHROPATHY TOXIC [None]
  - SKULL MALFORMATION [None]
  - THYMUS HYPOPLASIA [None]
  - DYSMORPHISM [None]
  - DELAYED FONTANELLE CLOSURE [None]
  - MATERNAL EXPOSURE DURING PREGNANCY [None]
  - PULMONARY HYPOPLASIA [None]
